FAERS Safety Report 8607183 (Version 3)
Quarter: 2013Q4

REPORT INFORMATION
  Report Type: Spontaneous
  Country: US (occurrence: US)
  Receive Date: 20120611
  Receipt Date: 20131113
  Transmission Date: 20140711
  Serious: Yes (Hospitalization)
  Sender: FDA-Public Use
  Company Number: US-BAYER-2012-056313

PATIENT
  Age: 24 Year
  Sex: Female
  Weight: 67.57 kg

DRUGS (3)
  1. GIANVI [Suspect]
     Dosage: UNK
  2. XANAX [Concomitant]
     Dosage: 0.25 MG, PRN
  3. PROAIR HFA [Concomitant]
     Indication: ASTHMA
     Dosage: AT LEAST 2 [TIMES PER] WEEK

REACTIONS (1)
  - Pulmonary embolism [None]
